FAERS Safety Report 22798748 (Version 2)
Quarter: 2023Q4

REPORT INFORMATION
  Report Type: Spontaneous
  Country: CA (occurrence: CA)
  Receive Date: 20230808
  Receipt Date: 20231026
  Transmission Date: 20240110
  Serious: Yes (Hospitalization, Other)
  Sender: FDA-Public Use
  Company Number: CA-FreseniusKabi-FK202311792

PATIENT
  Age: 71 Year
  Sex: Male

DRUGS (4)
  1. HEPARIN SODIUM [Suspect]
     Active Substance: HEPARIN SODIUM
     Indication: Thrombosis prophylaxis
     Dosage: DOSAGE FORM: SOLUTION INTRAVENOUS
     Route: 058
  2. HEPARIN SODIUM [Suspect]
     Active Substance: HEPARIN SODIUM
     Dosage: DOSAGE FORM: SOLUTION INTRAVENOUS
     Route: 058
  3. HEPARIN SODIUM [Suspect]
     Active Substance: HEPARIN SODIUM
     Dosage: DOSAGE FORM: SOLUTION INTRAVENOUS
     Route: 058
  4. ENOXAPARIN [Suspect]
     Active Substance: ENOXAPARIN
     Indication: Product used for unknown indication
     Route: 058

REACTIONS (5)
  - Autoimmune heparin-induced thrombocytopenia [Unknown]
  - Deep vein thrombosis [Unknown]
  - Intestinal infarction [Unknown]
  - Thrombocytopenia [Unknown]
  - Colectomy [Unknown]
